FAERS Safety Report 7964273-0 (Version None)
Quarter: 2011Q4

REPORT INFORMATION
  Report Type: 
  Country: None (occurrence: None)
  Receive Date: 20111208
  Receipt Date: 20111201
  Transmission Date: 20120403
  Serious: Yes (Other)
  Sender: FDA-Public Use
  Company Number: US-AMGEN-USASP2011063876

PATIENT
  Age: 45 Year
  Sex: Female

DRUGS (7)
  1. FOLIC ACID [Concomitant]
     Dosage: 1 MG, QD
  2. TOPROL-XL [Concomitant]
     Dosage: 1 MG, QWK
  3. NORCO [Concomitant]
  4. METHOTREXATE [Concomitant]
     Dosage: 1 MG, QWK
  5. FENTANYL-100 [Concomitant]
     Dosage: 1 MUG, QD
  6. VITAMIN D [Concomitant]
  7. ENBREL [Suspect]
     Indication: RHEUMATOID ARTHRITIS
     Dosage: 25 MG, ONCE IN THREE DAYS
     Dates: start: 20111122, end: 20111129

REACTIONS (5)
  - PALPITATIONS [None]
  - HEART RATE DECREASED [None]
  - BLOOD PRESSURE DECREASED [None]
  - SYNCOPE [None]
  - CHEST PAIN [None]
